FAERS Safety Report 10877502 (Version 3)
Quarter: 2015Q1

REPORT INFORMATION
  Report Type: Spontaneous
  Country: CO (occurrence: CO)
  Receive Date: 20150302
  Receipt Date: 20150309
  Transmission Date: 20150721
  Serious: Yes (Other)
  Sender: FDA-Public Use
  Company Number: CO-JNJFOC-20150216902

PATIENT
  Age: 45 Year
  Sex: Female
  Weight: 63 kg

DRUGS (1)
  1. SIMPONI [Suspect]
     Active Substance: GOLIMUMAB
     Indication: RHEUMATOID ARTHRITIS
     Route: 058
     Dates: start: 20140211

REACTIONS (4)
  - Anxiety [Not Recovered/Not Resolved]
  - Hypotension [Recovered/Resolved]
  - Tinnitus [Not Recovered/Not Resolved]
  - Nervousness [Not Recovered/Not Resolved]

NARRATIVE: CASE EVENT DATE: 20150221
